FAERS Safety Report 9282731 (Version 2)
Quarter: 2013Q3

REPORT INFORMATION
  Report Type: Report from Study
  Country: BR (occurrence: BR)
  Receive Date: 20130510
  Receipt Date: 20130731
  Transmission Date: 20140515
  Serious: Yes (Death, Other)
  Sender: FDA-Public Use
  Company Number: PHHY2013BR045782

PATIENT
  Sex: Female

DRUGS (6)
  1. TRILEPTAL [Suspect]
     Indication: EPILEPSY
     Dosage: 4 DF, DAILY
     Dates: start: 2004, end: 20130427
  2. GARDENAL [Concomitant]
     Indication: EPILEPSY
     Dosage: 2 DF, QD
     Route: 048
     Dates: end: 20130427
  3. LAMITOR [Concomitant]
     Indication: AFFECTIVE DISORDER
     Dosage: 2 DF, QD
     Route: 048
     Dates: start: 2004, end: 20130427
  4. NEOTIAPIM [Concomitant]
     Indication: AFFECTIVE DISORDER
     Dosage: 3 DF, QD
     Route: 048
     Dates: start: 2004, end: 20130427
  5. RIVOTRIL [Concomitant]
     Indication: INSOMNIA
     Dosage: 2 DF, QD
     Route: 048
     Dates: start: 2000, end: 20130427
  6. SYNTHROID [Concomitant]
     Indication: HYPOTHYROIDISM
     Dosage: 1 DF, QD
     Route: 048
     Dates: start: 2000, end: 20130427

REACTIONS (6)
  - Convulsion [Fatal]
  - Presyncope [Fatal]
  - Mental retardation [Fatal]
  - Anaemia [Unknown]
  - Hypovitaminosis [Unknown]
  - Osteoporosis [Unknown]
